FAERS Safety Report 9869335 (Version 1)
Quarter: 2014Q1

REPORT INFORMATION
  Report Type: Spontaneous
  Country: US (occurrence: US)
  Receive Date: 20140205
  Receipt Date: 20140205
  Transmission Date: 20141002
  Serious: Yes (Other)
  Sender: FDA-Public Use
  Company Number: US-JNJFOC-20140117171

PATIENT
  Sex: 0

DRUGS (2)
  1. LEVAQUIN [Suspect]
     Indication: BACTERAEMIA
     Route: 065
  2. LEVAQUIN [Suspect]
     Indication: LEUKOPENIA
     Route: 065

REACTIONS (4)
  - Fibromyalgia [Unknown]
  - Neuropathy peripheral [Unknown]
  - Restless legs syndrome [Unknown]
  - Fatigue [Unknown]
